FAERS Safety Report 17873188 (Version 1)
Quarter: 2020Q2

REPORT INFORMATION
  Report Type: Spontaneous
  Country: US (occurrence: US)
  Receive Date: 20200608
  Receipt Date: 20200608
  Transmission Date: 20200714
  Serious: No
  Sender: FDA-Public Use
  Company Number: US-OSMOTICA_PHARMACEUTICAL_US_LLC-POI0573202000254

PATIENT
  Age: 78 Year
  Sex: Female

DRUGS (1)
  1. OSMOLEX ER [Suspect]
     Active Substance: AMANTADINE
     Indication: PARKINSON^S DISEASE
     Dates: start: 20200211, end: 202003

REACTIONS (4)
  - Dysarthria [Recovered/Resolved]
  - Paraesthesia [Recovered/Resolved]
  - Headache [Recovered/Resolved]
  - Tremor [Recovered/Resolved]

NARRATIVE: CASE EVENT DATE: 202002
